FAERS Safety Report 23875275 (Version 6)
Quarter: 2024Q4

REPORT INFORMATION
  Report Type: Spontaneous
  Country: US (occurrence: US)
  Receive Date: 20240520
  Receipt Date: 20241112
  Transmission Date: 20250115
  Serious: Yes (Other)
  Sender: NOVARTIS
  Company Number: US-002147023-NVSC2024US101120

PATIENT

DRUGS (1)
  1. KESIMPTA [Suspect]
     Active Substance: OFATUMUMAB
     Indication: Product used for unknown indication
     Dosage: UNK
     Route: 065

REACTIONS (13)
  - Multiple sclerosis [Unknown]
  - General physical condition abnormal [Unknown]
  - Hypoaesthesia [Unknown]
  - Nerve compression [Unknown]
  - Asthenia [Unknown]
  - Influenza like illness [Recovered/Resolved]
  - Body temperature increased [Recovered/Resolved]
  - Hyperhidrosis [Recovered/Resolved]
  - Chills [Recovered/Resolved]
  - Fatigue [Recovered/Resolved]
  - Gait disturbance [Recovered/Resolved]
  - Injection site pain [Unknown]
  - Therapeutic product effect incomplete [Unknown]
